FAERS Safety Report 7199448-4 (Version None)
Quarter: 2010Q4

REPORT INFORMATION
  Report Type: 
  Country: None (occurrence: None)
  Receive Date: 20101228
  Receipt Date: 20101217
  Transmission Date: 20110411
  Serious: No
  Sender: FDA-Public Use
  Company Number: JP-JNJFOC-20101207885

PATIENT
  Age: 8 Decade
  Sex: Male

DRUGS (4)
  1. DUROTEP MT [Suspect]
     Indication: PAIN MANAGEMENT
     Route: 062
  2. DUROTEP MT [Suspect]
     Route: 062
  3. DUROTEP MT [Suspect]
     Route: 062
  4. WARFARIN SODIUM [Concomitant]
     Route: 048

REACTIONS (1)
  - DRUG PRESCRIBING ERROR [None]
